FAERS Safety Report 18902568 (Version 2)
Quarter: 2021Q1

REPORT INFORMATION
  Report Type: Spontaneous
  Country: KR (occurrence: KR)
  Receive Date: 20210216
  Receipt Date: 20210222
  Transmission Date: 20210420
  Serious: Yes (Death, Other)
  Sender: FDA-Public Use
  Company Number: KR-GILEAD-2021-0517367

PATIENT
  Sex: Male
  Weight: 77 kg

DRUGS (48)
  1. HARNAL [Concomitant]
     Active Substance: TAMSULOSIN HYDROCHLORIDE
  2. PROSCAR [Concomitant]
     Active Substance: FINASTERIDE
  3. NOVORAPID [Concomitant]
     Active Substance: INSULIN ASPART
  4. PENIRAMIN [Concomitant]
  5. ATROVENT [Concomitant]
     Active Substance: IPRATROPIUM BROMIDE
  6. PULMICAN [Concomitant]
  7. NORSPAN [Concomitant]
     Active Substance: BUPRENORPHINE
  8. PRECEDEX [Concomitant]
     Active Substance: DEXMEDETOMIDINE HYDROCHLORIDE
  9. VEKLURY [Suspect]
     Active Substance: REMDESIVIR
     Indication: COVID-19
     Dosage: 200 MG, QD
     Route: 042
     Dates: start: 20210115, end: 20210115
  10. DEXAMETHASONE. [Concomitant]
     Active Substance: DEXAMETHASONE
  11. MUTERAN [Concomitant]
     Active Substance: ACETYLCYSTEINE
  12. NOLTEC [Concomitant]
  13. ASPIRIN [ACETYLSALICYLIC ACID] [Concomitant]
     Active Substance: ASPIRIN
  14. VENTOLIN [Concomitant]
     Active Substance: ALBUTEROL SULFATE
  15. DIGOXIN. [Concomitant]
     Active Substance: DIGOXIN
  16. NEXIUM I.V. [Concomitant]
     Active Substance: ESOMEPRAZOLE SODIUM
  17. MEROPEN [MEROPENEM] [Concomitant]
     Active Substance: MEROPENEM
  18. EPINEPHRINE. [Concomitant]
     Active Substance: EPINEPHRINE
  19. VEKLURY [Suspect]
     Active Substance: REMDESIVIR
     Dosage: 100 MG, QD
     Route: 042
     Dates: start: 20210116, end: 20210119
  20. XANAX [Concomitant]
     Active Substance: ALPRAZOLAM
  21. COZAAR [Concomitant]
     Active Substance: LOSARTAN POTASSIUM
  22. DILATREND [Concomitant]
     Active Substance: CARVEDILOL
  23. PARACAP [Concomitant]
  24. SUCCINYLCHOLINE [SUXAMETHONIUM] [Concomitant]
     Active Substance: SUCCINYLCHOLINE
  25. NORPIN [BUPRENORPHINE HYDROCHLORIDE] [Concomitant]
  26. TAMIPOOL [Concomitant]
     Active Substance: VITAMINS
  27. ESOMEZOL [ESOMEPRAZOLE MAGNESIUM] [Concomitant]
  28. TRESIBA [Concomitant]
     Active Substance: INSULIN DEGLUDEC
  29. HERBEN [Concomitant]
     Active Substance: DILTIAZEM HYDROCHLORIDE
  30. CODEINE [Concomitant]
     Active Substance: CODEINE
  31. ALBUMIN [Concomitant]
     Active Substance: ALBUMIN HUMAN
  32. FENTANYL. [Concomitant]
     Active Substance: FENTANYL
  33. ETOMIDATE?LIPURO [Concomitant]
     Active Substance: ETOMIDATE
  34. ULTIAN [Concomitant]
  35. VFEND [Concomitant]
     Active Substance: VORICONAZOLE
  36. MOTILITONE [Concomitant]
     Active Substance: HERBALS
  37. MUCOMYST [Concomitant]
     Active Substance: ACETYLCYSTEINE
  38. DEPAS [ETIZOLAM] [Concomitant]
     Active Substance: ETIZOLAM
  39. VASOPRESSIN. [Concomitant]
     Active Substance: VASOPRESSIN
  40. SODIUM BICARBONATE. [Concomitant]
     Active Substance: SODIUM BICARBONATE
  41. DICHLOZID [Concomitant]
  42. LEGALON [Concomitant]
     Active Substance: DIETARY SUPPLEMENT\HERBALS\MILK THISTLE
  43. ERDOS [Concomitant]
     Active Substance: ERDOSTEINE
  44. NORVASC [Concomitant]
     Active Substance: AMLODIPINE BESYLATE
  45. PERATAM [Concomitant]
  46. TAPOCIN [Concomitant]
  47. TRIDOL [Concomitant]
     Active Substance: TRAMADOL HYDROCHLORIDE
  48. ATRA [ATRACURIUM BESILATE] [Concomitant]

REACTIONS (1)
  - Acute respiratory distress syndrome [Fatal]
